FAERS Safety Report 5871005-9 (Version None)
Quarter: 2008Q3

REPORT INFORMATION
  Report Type: 
  Country: None (occurrence: None)
  Receive Date: 20080904
  Receipt Date: 20080828
  Transmission Date: 20090109
  Serious: Yes (Death, Life-Threatening, Hospitalization)
  Sender: FDA-Public Use
  Company Number: DE-BOEHRINGER INGELHEIM GMBH, GERMANY-2005-DE-05105DE

PATIENT
  Sex: Male

DRUGS (3)
  1. VIRAMUNE [Suspect]
     Indication: HIV INFECTION
     Route: 048
     Dates: start: 20051012, end: 20051026
  2. KIVEXA [Concomitant]
     Indication: HIV INFECTION
     Route: 048
     Dates: start: 20051010, end: 20051026
  3. COMBIVIR [Concomitant]
     Indication: HIV INFECTION

REACTIONS (2)
  - SHOCK [None]
  - TOXIC EPIDERMAL NECROLYSIS [None]
